FAERS Safety Report 24861416 (Version 4)
Quarter: 2025Q1

REPORT INFORMATION
  Report Type: Report from Study
  Country: US (occurrence: US)
  Receive Date: 20250120
  Receipt Date: 20250219
  Transmission Date: 20250408
  Serious: Yes (Other)
  Sender: TAKEDA
  Company Number: US-TAKEDA-2025TUS005483

PATIENT
  Sex: Female

DRUGS (16)
  1. PONATINIB [Suspect]
     Active Substance: PONATINIB
     Indication: Chronic myeloid leukaemia
     Dosage: 45 MILLIGRAM, QD
  2. PONATINIB [Suspect]
     Active Substance: PONATINIB
     Dosage: 45 MILLIGRAM, QD
     Dates: start: 20250119
  3. PONATINIB [Suspect]
     Active Substance: PONATINIB
     Dosage: 45 MILLIGRAM, QD
  4. DECITABINE [Concomitant]
     Active Substance: DECITABINE
  5. VITAMIN D [Concomitant]
     Active Substance: VITAMIN D NOS
  6. B12 [Concomitant]
  7. ZINC [Concomitant]
     Active Substance: ZINC
  8. EXCEDRIN MIGRAINE [Concomitant]
     Active Substance: ACETAMINOPHEN\ASPIRIN\CAFFEINE
  9. OMEGA 3 [Concomitant]
     Active Substance: CAPSAICIN
  10. VENCLEXTA [Concomitant]
     Active Substance: VENETOCLAX
  11. DIAZEPAM [Concomitant]
     Active Substance: DIAZEPAM
  12. ACETAMINOPHEN\OXYCODONE HYDROCHLORIDE [Concomitant]
     Active Substance: ACETAMINOPHEN\OXYCODONE HYDROCHLORIDE
  13. HERBALS\TURMERIC [Concomitant]
     Active Substance: HERBALS\TURMERIC
  14. IRON [Concomitant]
     Active Substance: IRON
  15. ASPIRIN [Concomitant]
     Active Substance: ASPIRIN
  16. EXCEDRIN [Concomitant]
     Active Substance: ACETAMINOPHEN\ASPIRIN\CAFFEINE

REACTIONS (9)
  - Acute myeloid leukaemia [Unknown]
  - COVID-19 [Unknown]
  - Liver disorder [Unknown]
  - Renal disorder [Unknown]
  - Cardiac disorder [Unknown]
  - Blood glucose increased [Unknown]
  - Pain in extremity [Unknown]
  - Feeling abnormal [Unknown]
  - Off label use [Unknown]
